FAERS Safety Report 15555705 (Version 1)
Quarter: 2018Q4

REPORT INFORMATION
  Report Type: Spontaneous
  Country: US (occurrence: US)
  Receive Date: 20181026
  Receipt Date: 20181026
  Transmission Date: 20190205
  Serious: Yes (Disabling)
  Sender: FDA-Public Use
  Company Number: None

PATIENT
  Age: 59 Year
  Sex: Female
  Weight: 117 kg

DRUGS (1)
  1. PROLIA [Suspect]
     Active Substance: DENOSUMAB
     Indication: OSTEOPOROSIS
     Dosage: 1 INJECTION(S); 6 MONTHS; INFUSION- SHOT?
     Dates: start: 20180228, end: 20180829

REACTIONS (8)
  - Loss of personal independence in daily activities [None]
  - Quality of life decreased [None]
  - Cardiac disorder [None]
  - Arthralgia [None]
  - Gait inability [None]
  - Walking aid user [None]
  - Infusion related reaction [None]
  - Myalgia [None]

NARRATIVE: CASE EVENT DATE: 20180228
